FAERS Safety Report 5481459-8 (Version None)
Quarter: 2007Q4

REPORT INFORMATION
  Report Type: 
  Country: None (occurrence: None)
  Receive Date: 20071010
  Receipt Date: 20071001
  Transmission Date: 20080405
  Serious: Yes (Hospitalization)
  Sender: FDA-Public Use
  Company Number: US-JNJFOC-20070902824

PATIENT
  Sex: Male
  Weight: 44 kg

DRUGS (4)
  1. INFLIXIMAB [Suspect]
     Indication: COLITIS ULCERATIVE
     Route: 042
  2. 5-ASA [Concomitant]
  3. PREDNISONE [Concomitant]
  4. 6MP [Concomitant]

REACTIONS (1)
  - COLITIS ULCERATIVE [None]
